FAERS Safety Report 5278044-X (Version None)
Quarter: 2007Q1

REPORT INFORMATION
  Report Type: 
  Country: None (occurrence: None)
  Receive Date: 20070327
  Receipt Date: 20070320
  Transmission Date: 20070707
  Serious: Yes (Other)
  Sender: FDA-Public Use
  Company Number: CA-ELI_LILLY_AND_COMPANY-CA200703004513

PATIENT
  Age: 42 Year
  Sex: Male

DRUGS (1)
  1. HUMALOG [Suspect]
     Indication: DIABETES MELLITUS
     Dosage: UNK, DAILY (1/D)
     Route: 058
     Dates: start: 20060101

REACTIONS (1)
  - SUICIDAL IDEATION [None]
